FAERS Safety Report 9054495 (Version 1)
Quarter: 2013Q1

REPORT INFORMATION
  Report Type: Spontaneous
  Country: US (occurrence: US)
  Receive Date: 20130208
  Receipt Date: 20130208
  Transmission Date: 20140127
  Serious: No
  Sender: FDA-Public Use
  Company Number: US-GLAXOSMITHKLINE-A0992949A

PATIENT
  Sex: 0

DRUGS (1)
  1. PAXIL [Suspect]
     Indication: PRODUCT USED FOR UNKNOWN INDICATION
     Dosage: 20MG PER DAY
     Route: 065

REACTIONS (7)
  - Anxiety [Recovering/Resolving]
  - Depression [Recovering/Resolving]
  - Drug withdrawal syndrome [Unknown]
  - Vertigo positional [Unknown]
  - Vomiting [Unknown]
  - Sensory disturbance [Unknown]
  - Fatigue [Unknown]
